FAERS Safety Report 21522321 (Version 1)
Quarter: 2022Q4

REPORT INFORMATION
  Report Type: Spontaneous
  Country: US (occurrence: US)
  Receive Date: 20221028
  Receipt Date: 20221028
  Transmission Date: 20230112
  Serious: Yes (Hospitalization)
  Sender: FDA-Public Use
  Company Number: US-STRIDES ARCOLAB LIMITED-2022SP014061

PATIENT
  Age: 17 Year
  Sex: Male

DRUGS (6)
  1. DOXYCYCLINE [Interacting]
     Active Substance: DOXYCYCLINE
     Indication: Cat scratch disease
     Dosage: 100 MILLIGRAM, BID
     Route: 048
  2. PREDNISOLONE [Interacting]
     Active Substance: PREDNISOLONE
     Indication: Cat scratch disease
     Dosage: 1 MILLIGRAM/KILOGRAM, BID
     Route: 065
  3. PREDNISOLONE [Interacting]
     Active Substance: PREDNISOLONE
     Dosage: UNK, TAPER AND DISCONTINUED
     Route: 065
  4. PREDNISOLONE [Interacting]
     Active Substance: PREDNISOLONE
     Dosage: 50 MILLIGRAM, PER DAY
     Route: 065
  5. RIFAMPIN [Interacting]
     Active Substance: RIFAMPIN
     Indication: Cat scratch disease
     Dosage: 300 MILLIGRAM, BID
     Route: 048
  6. METHYLPREDNISOLONE [Concomitant]
     Active Substance: METHYLPREDNISOLONE
     Indication: Optic neuritis
     Dosage: 1000 MILLIGRAM PER 20 HOURS
     Route: 042

REACTIONS (5)
  - Vitritis [Recovered/Resolved]
  - Retinal haemorrhage [Recovered/Resolved]
  - Optic neuritis [Recovered/Resolved]
  - Drug interaction [Unknown]
  - Off label use [Unknown]
